FAERS Safety Report 24166962 (Version 1)
Quarter: 2024Q3

REPORT INFORMATION
  Report Type: Spontaneous
  Country: US (occurrence: US)
  Receive Date: 20240802
  Receipt Date: 20240802
  Transmission Date: 20241017
  Serious: No
  Sender: ENDO
  Company Number: ENDB23-03322

PATIENT
  Sex: Male

DRUGS (16)
  1. EDEX [Suspect]
     Active Substance: ALPROSTADIL
     Indication: Erectile dysfunction
     Dosage: 40 MG, UNKNOWN
     Route: 017
     Dates: start: 2022
  2. EDEX [Suspect]
     Active Substance: ALPROSTADIL
     Indication: Erectile dysfunction
     Dosage: 40 MG, UNKNOWN
     Route: 017
     Dates: start: 2022
  3. EDEX [Suspect]
     Active Substance: ALPROSTADIL
     Indication: Erectile dysfunction
     Dosage: 40 MG, UNKNOWN
     Route: 017
     Dates: start: 2022
  4. EDEX [Suspect]
     Active Substance: ALPROSTADIL
     Indication: Erectile dysfunction
     Dosage: 40 MG, UNKNOWN
     Route: 017
     Dates: start: 2022
  5. EDEX [Suspect]
     Active Substance: ALPROSTADIL
     Indication: Erectile dysfunction
     Dosage: 40 MG, UNKNOWN
     Route: 017
     Dates: start: 2022
  6. EDEX [Suspect]
     Active Substance: ALPROSTADIL
     Dosage: 40 ?G, UNKNOWN
     Route: 065
     Dates: start: 2022
  7. EDEX [Suspect]
     Active Substance: ALPROSTADIL
     Dosage: 40 ?G, UNKNOWN
     Route: 065
     Dates: start: 2022
  8. EDEX [Suspect]
     Active Substance: ALPROSTADIL
     Dosage: 40 ?G, UNKNOWN
     Route: 065
     Dates: start: 2022
  9. EDEX [Suspect]
     Active Substance: ALPROSTADIL
     Dosage: 40 ?G, UNKNOWN
     Route: 065
     Dates: start: 2022
  10. EDEX [Suspect]
     Active Substance: ALPROSTADIL
     Dosage: 40 ?G, UNKNOWN
     Route: 065
     Dates: start: 2022
  11. EDEX [Suspect]
     Active Substance: ALPROSTADIL
     Dosage: UNK UNKNOWN, UNKNOWN
     Route: 065
  12. EDEX [Suspect]
     Active Substance: ALPROSTADIL
     Dosage: UNK UNKNOWN, UNKNOWN
     Route: 065
  13. EDEX [Suspect]
     Active Substance: ALPROSTADIL
     Dosage: UNK UNKNOWN, UNKNOWN
     Route: 065
  14. EDEX [Suspect]
     Active Substance: ALPROSTADIL
     Dosage: UNK UNKNOWN, UNKNOWN
     Route: 065
  15. EDEX [Suspect]
     Active Substance: ALPROSTADIL
     Dosage: UNK UNKNOWN, UNKNOWN
     Route: 065
  16. UNSPECIFIED INGREDIENT [Concomitant]
     Active Substance: UNSPECIFIED INGREDIENT
     Indication: Product used for unknown indication
     Dosage: UNK UNKNOWN, UNKNOWN
     Route: 065

REACTIONS (1)
  - Drug ineffective [Unknown]

NARRATIVE: CASE EVENT DATE: 20220101
